FAERS Safety Report 22829073 (Version 2)
Quarter: 2024Q1

REPORT INFORMATION
  Report Type: Spontaneous
  Country: US (occurrence: US)
  Receive Date: 20230816
  Receipt Date: 20240312
  Transmission Date: 20240410
  Serious: No
  Sender: FDA-Public Use
  Company Number: US-PFIZER INC-PV202300139814

PATIENT
  Age: 59 Year
  Sex: Female

DRUGS (2)
  1. XELJANZ XR [Suspect]
     Active Substance: TOFACITINIB CITRATE
     Indication: Rheumatoid arthritis
     Dosage: 11 MG, 1X/DAY
     Route: 048
     Dates: start: 20230111
  2. GENOTROPIN [Concomitant]
     Active Substance: SOMATROPIN

REACTIONS (4)
  - Discouragement [Unknown]
  - Frustration tolerance decreased [Unknown]
  - Grip strength decreased [Unknown]
  - Fatigue [Recovering/Resolving]
